FAERS Safety Report 8500966-4 (Version None)
Quarter: 2012Q2

REPORT INFORMATION
  Report Type: 
  Country: None (occurrence: None)
  Receive Date: 20120405
  Receipt Date: 20100225
  Transmission Date: 20120825
  Serious: Yes (Other)
  Sender: FDA-Public Use
  Company Number: PHEH2010US01206

PATIENT
  Age: 68 Year
  Sex: Female
  Weight: 79 kg

DRUGS (11)
  1. LOPRESSOR [Concomitant]
  2. LEXAPRO [Concomitant]
  3. PREVACID [Concomitant]
  4. ZETIA [Concomitant]
  5. MIDODRINE HYDROCHLORIDE [Concomitant]
  6. SYNTHROID [Concomitant]
  7. PERCOCET [Concomitant]
  8. VISTARIL [Concomitant]
  9. LIPITOR [Concomitant]
  10. RECLAST [Suspect]
     Indication: OSTEOPOROSIS
     Dosage: ONE DOSE 5 MG YEARLY, INFUSION
     Dates: start: 20091218
  11. PLAVIX [Concomitant]

REACTIONS (2)
  - RENAL FAILURE [None]
  - HAEMOGLOBIN DECREASED [None]
